FAERS Safety Report 6311803-0 (Version None)
Quarter: 2009Q3

REPORT INFORMATION
  Report Type: 
  Country: None (occurrence: None)
  Receive Date: 20090813
  Receipt Date: 20090813
  Transmission Date: 20100115
  Serious: Yes (Disabling)
  Sender: FDA-Public Use
  Company Number: None

PATIENT
  Sex: Male
  Weight: 63.5036 kg

DRUGS (2)
  1. FLOMAX [Suspect]
     Indication: PROSTATOMEGALY
     Dosage: 0.4 MG. DAILY TO DAILY SWALLOW
     Dates: start: 20000101, end: 20090501
  2. TAMSULOSIN [Suspect]

REACTIONS (4)
  - CATARACT [None]
  - EYE INJURY [None]
  - GLAUCOMA [None]
  - VISUAL IMPAIRMENT [None]
